FAERS Safety Report 10042178 (Version 1)
Quarter: 2014Q1

REPORT INFORMATION
  Report Type: Spontaneous
  Country: US (occurrence: US)
  Receive Date: 20140327
  Receipt Date: 20140327
  Transmission Date: 20141002
  Serious: Yes (Disabling)
  Sender: FDA-Public Use
  Company Number: US-GLAXOSMITHKLINE-A1066089A

PATIENT
  Age: 81 Year
  Sex: Male

DRUGS (8)
  1. VOTRIENT [Suspect]
     Indication: HEPATIC NEOPLASM
     Dosage: 4TAB PER DAY
     Route: 048
     Dates: start: 20131203
  2. DILTIAZEM [Concomitant]
  3. FLOMAX [Concomitant]
  4. FUROSEMIDE [Concomitant]
  5. GLUCOSAMINE/CHONDROITIN [Concomitant]
  6. MULTIVITAMIN [Concomitant]
  7. WARFARIN [Concomitant]
  8. RADIATION [Concomitant]

REACTIONS (2)
  - Hospice care [Unknown]
  - Procedural complication [Unknown]
